FAERS Safety Report 9150397 (Version 1)
Quarter: 2013Q1

REPORT INFORMATION
  Report Type: Spontaneous
  Country: DK (occurrence: None)
  Receive Date: 20130129
  Receipt Date: 20130129
  Transmission Date: 20140127
  Serious: Yes (Other)
  Sender: FDA-Public Use
  Company Number: 2013MA000620

PATIENT
  Age: 59 Year
  Sex: Male

DRUGS (7)
  1. PANTOPRAZOLE [Suspect]
     Indication: ACUTE MYOCARDIAL INFARCTION
     Route: 048
     Dates: start: 20120907, end: 20130110
  2. PLAVIX (CLOPIDOGREL SULFATE) [Suspect]
     Indication: ACUTE MYOCARDIAL INFARCTION
     Route: 048
     Dates: start: 20120907, end: 20121211
  3. OLPRESS [Suspect]
     Indication: ACUTE MYOCARDIAL INFARCTION
     Route: 048
     Dates: start: 20120907, end: 20121211
  4. CONGESCOR [Concomitant]
  5. PROVISACOR [Concomitant]
  6. CARDIOASPIRIN [Concomitant]
  7. ESKIM [Concomitant]

REACTIONS (2)
  - Melaena [None]
  - Diarrhoea [None]
